FAERS Safety Report 6805058-8 (Version None)
Quarter: 2010Q2

REPORT INFORMATION
  Report Type: 
  Country: None (occurrence: None)
  Receive Date: 20100628
  Receipt Date: 20070801
  Transmission Date: 20101027
  Serious: Yes (Other)
  Sender: FDA-Public Use
  Company Number: US-PFIZER INC-2007064873

PATIENT
  Sex: Male

DRUGS (2)
  1. CADUET [Suspect]
     Dosage: 10/10  DAILY
     Dates: start: 20070101
  2. OPHTHALMOLOGICALS [Concomitant]

REACTIONS (3)
  - AGEUSIA [None]
  - PAROSMIA [None]
  - SINUSITIS [None]
